FAERS Safety Report 5638946-9 (Version None)
Quarter: 2008Q1

REPORT INFORMATION
  Report Type: 
  Country: None (occurrence: None)
  Receive Date: 20080225
  Receipt Date: 20080225
  Transmission Date: 20080703
  Serious: Yes (Life-Threatening, Hospitalization)
  Sender: FDA-Public Use
  Company Number: None

PATIENT
  Age: 64 Year
  Sex: Male
  Weight: 101.8 kg

DRUGS (14)
  1. ATAZANAVIR SULFATE [Suspect]
     Indication: ANTIRETROVIRAL THERAPY
     Dosage: 300MG DAILY PO
     Route: 048
  2. CARDIZEM CD [Concomitant]
  3. METOPROLOL TARTRATE [Concomitant]
  4. NORVIR [Concomitant]
  5. EPZICOM [Concomitant]
  6. BACTRIM DS [Concomitant]
  7. KEPPRA [Concomitant]
  8. PRAVACHOL [Concomitant]
  9. ASPIRIN [Concomitant]
  10. IMDUR [Concomitant]
  11. HYDROCHLOROTHIAZIDE [Concomitant]
  12. ADVAIR DISKUS 100/50 [Concomitant]
  13. IRON SUPPLEMENTS [Concomitant]
  14. INSULIN [Concomitant]

REACTIONS (6)
  - AV DISSOCIATION [None]
  - DYSPNOEA [None]
  - FATIGUE [None]
  - NAUSEA [None]
  - NODAL ARRHYTHMIA [None]
  - VOMITING [None]
